FAERS Safety Report 5073233-1 (Version None)
Quarter: 2006Q3

REPORT INFORMATION
  Report Type: 
  Country: None (occurrence: None)
  Receive Date: 20060710
  Receipt Date: 20060131
  Transmission Date: 20061208
  Serious: Yes (Other)
  Sender: FDA-Public Use
  Company Number: US-2006-001955

PATIENT
  Age: 64 Year
  Sex: Female
  Weight: 72.1 kg

DRUGS (5)
  1. ULTRAVIST 300 [Suspect]
     Indication: COMPUTERISED TOMOGRAM ABDOMEN
     Dosage: 100 ML, 1 DOSE, INTRAVENOUS
     Route: 042
     Dates: start: 20060125, end: 20060125
  2. ATENOLOL [Concomitant]
  3. NORVASC [Concomitant]
  4. ATENOLOL [Concomitant]
  5. NORVASC [Concomitant]

REACTIONS (4)
  - CHEST PAIN [None]
  - PRURITUS [None]
  - SNEEZING [None]
  - URTICARIA LOCALISED [None]
